FAERS Safety Report 4521176-1 (Version None)
Quarter: 2004Q4

REPORT INFORMATION
  Report Type: 
  Country: None (occurrence: None)
  Receive Date: 20041208
  Receipt Date: 20041029
  Transmission Date: 20050328
  Serious: Yes (Hospitalization)
  Sender: FDA-Public Use
  Company Number: DE-MERCK-0411DEU00001

PATIENT
  Age: 68 Year
  Sex: Female
  Weight: 57 kg

DRUGS (6)
  1. VIOXX [Suspect]
     Indication: RHEUMATOID ARTHRITIS
     Route: 048
     Dates: start: 20030215, end: 20040301
  2. METHOTREXATE [Concomitant]
     Route: 065
     Dates: start: 19930101
  3. PREDNISOLONE [Concomitant]
     Route: 065
     Dates: start: 19930101
  4. FOLIC ACID [Concomitant]
     Route: 065
     Dates: start: 19930101
  5. CALCIUM CARBONATE AND CHOLECALCIFEROL [Concomitant]
     Route: 065
     Dates: start: 20010101
  6. VIOXX [Suspect]
     Route: 048
     Dates: start: 20001208, end: 20030214

REACTIONS (1)
  - CARDIAC MYXOMA [None]
